FAERS Safety Report 8989854 (Version 3)
Quarter: 2013Q1

REPORT INFORMATION
  Report Type: Spontaneous
  Country: US (occurrence: US)
  Receive Date: 20121228
  Receipt Date: 20130305
  Transmission Date: 20140127
  Serious: Yes (Life-Threatening, Other)
  Sender: FDA-Public Use
  Company Number: US-GLAXOSMITHKLINE-A1006061A

PATIENT
  Age: 19 Year
  Sex: Female
  Weight: 71.8 kg

DRUGS (2)
  1. ADVAIR [Suspect]
     Indication: ASTHMA
     Route: 055
     Dates: start: 20121219, end: 20121219
  2. ALBUTEROL [Concomitant]

REACTIONS (5)
  - Chest discomfort [Recovered/Resolved]
  - Wheezing [Recovered/Resolved]
  - Throat irritation [Recovered/Resolved]
  - Rash [Recovered/Resolved]
  - Product quality issue [Unknown]
